FAERS Safety Report 9199917 (Version 1)
Quarter: 2013Q1

REPORT INFORMATION
  Report Type: Report from Study
  Country: US (occurrence: US)
  Receive Date: 20130329
  Receipt Date: 20130329
  Transmission Date: 20140127
  Serious: Yes (Other)
  Sender: FDA-Public Use
  Company Number: US-ABBOTT-13P-163-1067349-00

PATIENT
  Age: 29 Year
  Sex: Female
  Weight: 52.21 kg

DRUGS (11)
  1. HUMIRA [Suspect]
     Indication: ANKYLOSING SPONDYLITIS
     Dates: start: 201208, end: 201209
  2. HUMIRA [Suspect]
     Dates: start: 201301
  3. CELEBREX [Concomitant]
     Indication: ANKYLOSING SPONDYLITIS
  4. LEVOTHYROXINE [Concomitant]
     Indication: HYPOTHYROIDISM
  5. SULFASALAZINE [Concomitant]
     Indication: ANKYLOSING SPONDYLITIS
  6. OMEPRAZOLE [Concomitant]
     Indication: ABDOMINAL DISCOMFORT
  7. ZYRTEC [Concomitant]
     Indication: SEASONAL ALLERGY
  8. FLONASE [Concomitant]
     Indication: SEASONAL ALLERGY
  9. CALCIUM [Concomitant]
     Indication: MINERAL SUPPLEMENTATION
  10. MULTIVITAMIN [Concomitant]
     Indication: VITAMIN SUPPLEMENTATION
  11. FISH OIL [Concomitant]
     Indication: MEDICAL DIET

REACTIONS (5)
  - Tonsillar disorder [Recovered/Resolved]
  - Ear infection [Recovered/Resolved]
  - Pharyngitis [Recovered/Resolved]
  - Hypertension [Not Recovered/Not Resolved]
  - Palpitations [Not Recovered/Not Resolved]
